FAERS Safety Report 5690681-7 (Version None)
Quarter: 2008Q1

REPORT INFORMATION
  Report Type: 
  Country: None (occurrence: None)
  Receive Date: 20080331
  Receipt Date: 20080331
  Transmission Date: 20080703
  Serious: Yes (Other)
  Sender: FDA-Public Use
  Company Number: None

PATIENT
  Age: 9 Year
  Sex: Male
  Weight: 30.391 kg

DRUGS (1)
  1. SINGULAIR [Suspect]
     Indication: ASTHMA
     Dosage: 5MG QD PO
     Route: 048
     Dates: start: 20080320, end: 20080330

REACTIONS (6)
  - AGGRESSION [None]
  - ASTHMA [None]
  - CONDITION AGGRAVATED [None]
  - DEPRESSION [None]
  - MOOD ALTERED [None]
  - NEGATIVE THOUGHTS [None]
